FAERS Safety Report 10177342 (Version 1)
Quarter: 2014Q2

REPORT INFORMATION
  Report Type: Spontaneous
  Country: US (occurrence: US)
  Receive Date: 20140516
  Receipt Date: 20140516
  Transmission Date: 20141212
  Serious: Yes (Death)
  Sender: FDA-Public Use
  Company Number: US-CUBIST PHARMACEUTICALS, INC.-2014CBST000703

PATIENT
  Sex: 0

DRUGS (13)
  1. CUBICIN [Suspect]
     Indication: BACTERAEMIA
     Dosage: UNK UNK, UNK
     Route: 065
  2. CUBICIN [Suspect]
     Indication: ENTEROBACTER INFECTION
  3. CUBICIN [Suspect]
     Indication: PNEUMONIA KLEBSIELLA
  4. CUBICIN [Suspect]
     Indication: ENTEROCOCCAL INFECTION
  5. CUBICIN [Suspect]
     Indication: OFF LABEL USE
  6. MEROPENEM [Concomitant]
     Indication: BACTERAEMIA
     Dosage: UNK UNK, UNK
     Route: 065
  7. MEROPENEM [Concomitant]
     Indication: ENTEROBACTER INFECTION
  8. MEROPENEM [Concomitant]
     Indication: PNEUMONIA KLEBSIELLA
  9. MEROPENEM [Concomitant]
     Indication: ENTEROCOCCAL INFECTION
  10. LINEZOLID [Concomitant]
     Indication: BACTERAEMIA
     Dosage: UNK UNK, UNK
     Route: 065
  11. LINEZOLID [Concomitant]
     Indication: ENTEROBACTER INFECTION
  12. LINEZOLID [Concomitant]
     Indication: PNEUMONIA KLEBSIELLA
  13. LINEZOLID [Concomitant]
     Indication: ENTEROCOCCAL INFECTION

REACTIONS (1)
  - Strongyloidiasis [Fatal]
